FAERS Safety Report 5832103-9 (Version None)
Quarter: 2008Q3

REPORT INFORMATION
  Report Type: 
  Country: None (occurrence: None)
  Receive Date: 20080804
  Receipt Date: 20080801
  Transmission Date: 20090109
  Serious: Yes (Hospitalization)
  Sender: FDA-Public Use
  Company Number: FR-RB-002794-08

PATIENT
  Sex: Male

DRUGS (11)
  1. SUBUTEX [Suspect]
     Indication: DRUG THERAPY
     Route: 065
     Dates: start: 20080627
  2. DAFALGAN [Concomitant]
     Indication: DRUG USE FOR UNKNOWN INDICATION
     Dosage: UNKNOWN DOSING INFORMATION.
     Route: 065
     Dates: start: 20080613
  3. ARIPIPRAZOLE [Concomitant]
     Indication: DRUG USE FOR UNKNOWN INDICATION
     Dosage: UNKNOWN DOSING INFORMATION
     Route: 065
     Dates: start: 20080627
  4. ZYPREXA [Concomitant]
     Indication: DRUG USE FOR UNKNOWN INDICATION
     Dosage: UNKNOWN DOSING INFORMATION.
     Route: 065
     Dates: start: 20080627
  5. ATARAX [Concomitant]
     Indication: DRUG USE FOR UNKNOWN INDICATION
     Dosage: UNKNOWN DOSING INFORMATION.
     Route: 065
     Dates: start: 20080627
  6. HEXTRIL [Concomitant]
     Dosage: UNKNOWN DOSING INFORMATION.
     Route: 065
     Dates: start: 20080703
  7. VIRAFERONPEG [Suspect]
     Indication: HEPATITIS C
     Dosage: 120MCG 1 INJECTION QW
     Route: 058
     Dates: start: 20080424
  8. REBETOL [Suspect]
     Indication: HEPATITIS C
     Route: 048
     Dates: start: 20080613
  9. MYCOSTATIN [Concomitant]
     Dosage: UNKNOWN DOSING INFORMATION.
     Route: 065
     Dates: start: 20080703
  10. IMOVANE [Concomitant]
     Indication: DRUG USE FOR UNKNOWN INDICATION
     Dosage: UNKNOWN DOSING INFORMATION.
     Route: 065
     Dates: start: 20080627
  11. SERTRALINE [Concomitant]
     Indication: DRUG USE FOR UNKNOWN INDICATION
     Dosage: UNKNOWN DOSING INFORMATION.
     Route: 065
     Dates: start: 20080627

REACTIONS (4)
  - DELUSION [None]
  - HYPERHIDROSIS [None]
  - PYREXIA [None]
  - WEIGHT DECREASED [None]
